FAERS Safety Report 7356567-7 (Version None)
Quarter: 2011Q1

REPORT INFORMATION
  Report Type: 
  Country: None (occurrence: None)
  Receive Date: 20110316
  Receipt Date: 20110302
  Transmission Date: 20110831
  Serious: Yes (Hospitalization)
  Sender: FDA-Public Use
  Company Number: PHHY2011US12322

PATIENT
  Sex: Female

DRUGS (7)
  1. AMLODIPINE BESYLATE [Concomitant]
     Dosage: 30 MG, UNK
  2. FEMARA [Suspect]
     Dosage: 2.5 MG, QD
     Route: 048
     Dates: start: 20100901
  3. SOTALOL HYDROCHLORIDE [Concomitant]
     Dosage: 80 MG, BID
  4. ISOSORBIDE DINITRATE [Concomitant]
     Dosage: 0.5 DF, QD
  5. HYDROCHLOROTHIAZIDE [Concomitant]
     Dosage: 0.5 MG, QD
  6. MULTIVITAMIN [Concomitant]
  7. TYLENOL-500 [Concomitant]

REACTIONS (5)
  - FATIGUE [None]
  - MALAISE [None]
  - CARDIAC DISORDER [None]
  - SLUGGISHNESS [None]
  - ACTIVITIES OF DAILY LIVING IMPAIRED [None]
